FAERS Safety Report 5457335-3 (Version None)
Quarter: 2007Q3

REPORT INFORMATION
  Report Type: 
  Country: None (occurrence: None)
  Receive Date: 20070918
  Receipt Date: 20070215
  Transmission Date: 20080115
  Serious: No
  Sender: FDA-Public Use
  Company Number: US-ASTRAZENECA-2007UW03014

PATIENT

DRUGS (1)
  1. SEROQUEL [Suspect]
     Route: 048

REACTIONS (7)
  - ASTHMA [None]
  - DIZZINESS [None]
  - INTENTIONAL DRUG MISUSE [None]
  - MALAISE [None]
  - RESPIRATORY DISORDER [None]
  - RHINITIS [None]
  - TACHYCARDIA [None]
